FAERS Safety Report 6943410-0 (Version None)
Quarter: 2010Q3

REPORT INFORMATION
  Report Type: 
  Country: None (occurrence: None)
  Receive Date: 20100826
  Receipt Date: 20100817
  Transmission Date: 20110219
  Serious: Yes (Other)
  Sender: FDA-Public Use
  Company Number: US-AMGEN-KDL432098

PATIENT
  Sex: Female

DRUGS (1)
  1. ENBREL [Suspect]
     Indication: RHEUMATOID ARTHRITIS
     Route: 058
     Dates: start: 20090320, end: 20100721

REACTIONS (3)
  - EYE INFECTION STAPHYLOCOCCAL [None]
  - EYELID CYST [None]
  - RHEUMATOID ARTHRITIS [None]
